FAERS Safety Report 8104999-1 (Version None)
Quarter: 2012Q1

REPORT INFORMATION
  Report Type: 
  Country: None (occurrence: None)
  Receive Date: 20120201
  Receipt Date: 20120123
  Transmission Date: 20120608
  Serious: Yes (Other)
  Sender: FDA-Public Use
  Company Number: JP-GLAXOSMITHKLINE-B0764288A

PATIENT
  Sex: Male
  Weight: 70 kg

DRUGS (4)
  1. TPN [Concomitant]
     Indication: NUTRITIONAL SUPPORT
     Dosage: 30IU3 PER DAY
     Route: 048
     Dates: start: 20111117, end: 20111121
  2. ARIXTRA [Suspect]
     Indication: THROMBOSIS PROPHYLAXIS
     Dosage: 2.5MG PER DAY
     Route: 058
     Dates: start: 20111116, end: 20111117
  3. ZOSYN [Concomitant]
     Indication: INFECTION
     Dosage: 13.5G PER DAY
     Route: 042
     Dates: start: 20111113, end: 20111122
  4. INTRALIPID 10% [Concomitant]
     Indication: NUTRITIONAL SUPPORT
     Dosage: 100ML PER DAY
     Route: 042
     Dates: start: 20111117, end: 20111117

REACTIONS (10)
  - GAMMA-GLUTAMYLTRANSFERASE INCREASED [None]
  - BLOOD BILIRUBIN INCREASED [None]
  - ASPARTATE AMINOTRANSFERASE INCREASED [None]
  - ACTIVATED PARTIAL THROMBOPLASTIN TIME PROLONGED [None]
  - HEPATIC FUNCTION ABNORMAL [None]
  - ALANINE AMINOTRANSFERASE INCREASED [None]
  - BLOOD ALKALINE PHOSPHATASE INCREASED [None]
  - BILIRUBIN CONJUGATED INCREASED [None]
  - BLOOD LACTATE DEHYDROGENASE INCREASED [None]
  - LEUCINE AMINOPEPTIDASE INCREASED [None]
